FAERS Safety Report 15376431 (Version 3)
Quarter: 2019Q4

REPORT INFORMATION
  Report Type: Spontaneous
  Country: DE (occurrence: DE)
  Receive Date: 20180912
  Receipt Date: 20191129
  Transmission Date: 20200122
  Serious: Yes (Death, Life-Threatening, Hospitalization, Other)
  Sender: FDA-Public Use
  Company Number: PHHY2018DE095979

PATIENT
  Age: 79 Year
  Sex: Male
  Weight: 74 kg

DRUGS (15)
  1. KALINOR [Concomitant]
     Indication: PRODUCT USED FOR UNKNOWN INDICATION
     Dosage: 1 DF, QD
     Route: 065
  2. HYDROCHLOROTHIAZIDE. [Concomitant]
     Active Substance: HYDROCHLOROTHIAZIDE
     Indication: PRODUCT USED FOR UNKNOWN INDICATION
     Dosage: 25 MG, QD
     Route: 065
  3. UROKINASE [Concomitant]
     Active Substance: UROKINASE
     Indication: PRODUCT USED FOR UNKNOWN INDICATION
     Dosage: UNK
     Route: 065
  4. PANTOZOL [Concomitant]
     Active Substance: PANTOPRAZOLE SODIUM
     Indication: PRODUCT USED FOR UNKNOWN INDICATION
     Dosage: 80 MG, QD
     Route: 048
  5. JANUVIA [Concomitant]
     Active Substance: SITAGLIPTIN PHOSPHATE
     Indication: PRODUCT USED FOR UNKNOWN INDICATION
     Dosage: 50 MG, QD
     Route: 065
  6. MERONEM [Concomitant]
     Active Substance: MEROPENEM
     Indication: PRODUCT USED FOR UNKNOWN INDICATION
     Dosage: 3 G, TID (1 G TID)
     Route: 042
  7. BISOPROLOL [Concomitant]
     Active Substance: BISOPROLOL
     Indication: PRODUCT USED FOR UNKNOWN INDICATION
     Dosage: 5 MG, QD
     Route: 065
  8. SPIRONOLACTONE. [Concomitant]
     Active Substance: SPIRONOLACTONE
     Indication: PRODUCT USED FOR UNKNOWN INDICATION
     Dosage: 25 MG, QD
     Route: 065
  9. ASPIRIN. [Suspect]
     Active Substance: ASPIRIN
     Indication: PRODUCT USED FOR UNKNOWN INDICATION
     Dosage: 100 MG, QD
     Route: 065
  10. CANDIO HERMAL [Concomitant]
     Indication: PRODUCT USED FOR UNKNOWN INDICATION
     Dosage: 4 DF, QD
     Route: 065
  11. ELIQUIS [Suspect]
     Active Substance: APIXABAN
     Indication: PULMONARY EMBOLISM
     Dosage: 20 MG, QD (10 MILLIGRAM, BID)
     Route: 065
     Dates: start: 20170519, end: 20170522
  12. MAGNESIUM [Concomitant]
     Active Substance: MAGNESIUM
     Indication: PRODUCT USED FOR UNKNOWN INDICATION
     Dosage: 1 DF, QD
     Route: 065
  13. TOUJEO [Concomitant]
     Active Substance: INSULIN GLARGINE
     Indication: PRODUCT USED FOR UNKNOWN INDICATION
     Dosage: 8 IU, QD
     Route: 065
  14. ELIQUIS [Suspect]
     Active Substance: APIXABAN
     Dosage: 5 MG, Q12H (2.5 MG, BID)
     Route: 065
     Dates: start: 20170523
  15. CLARITHROMYCIN. [Suspect]
     Active Substance: CLARITHROMYCIN
     Indication: PRODUCT USED FOR UNKNOWN INDICATION
     Dosage: 1000 MG, QD (500 MILLIGRAM, BID)
     Route: 048

REACTIONS (12)
  - Mouth haemorrhage [Unknown]
  - Ventricular fibrillation [Unknown]
  - Bladder irrigation [Unknown]
  - Haematoma [Unknown]
  - Intentional product use issue [Unknown]
  - Hypotension [Unknown]
  - Urinary bladder haemorrhage [Unknown]
  - Haematuria [Unknown]
  - Thrombosis [Unknown]
  - Haemothorax [Unknown]
  - Off label use [Unknown]
  - Death [Fatal]

NARRATIVE: CASE EVENT DATE: 20170522
